FAERS Safety Report 8860962 (Version 6)
Quarter: 2013Q2

REPORT INFORMATION
  Report Type: Spontaneous
  Country: US (occurrence: US)
  Receive Date: 20121025
  Receipt Date: 20130409
  Transmission Date: 20140414
  Serious: Yes (Hospitalization, Disabling, Other)
  Sender: FDA-Public Use
  Company Number: US-009507513-1210USA005986

PATIENT
  Sex: Female

DRUGS (5)
  1. FOSAMAX [Suspect]
     Indication: OSTEOPOROSIS
     Dosage: 35 MG, UNK
     Route: 048
     Dates: start: 20060315
  2. FOSAMAX [Suspect]
     Indication: OSTEOPENIA
  3. NAPROXEN [Concomitant]
     Indication: INFLAMMATION
     Dosage: 500 MG, UNK
     Dates: start: 20061110, end: 20071104
  4. NAPROXEN [Concomitant]
     Indication: PAIN
  5. METFORMIN [Concomitant]
     Indication: DIABETES MELLITUS
     Dosage: 500 MG, UNK
     Dates: start: 20041022

REACTIONS (21)
  - Open reduction of fracture [Not Recovered/Not Resolved]
  - Fall [Unknown]
  - Low turnover osteopathy [Not Recovered/Not Resolved]
  - Hip arthroplasty [Recovering/Resolving]
  - Renal failure [Unknown]
  - Transfusion [Unknown]
  - Haemoglobin decreased [Recovered/Resolved]
  - Urinary tract infection [Unknown]
  - Femur fracture [Not Recovered/Not Resolved]
  - Hypertension [Unknown]
  - Hypertension [Unknown]
  - Adverse drug reaction [Unknown]
  - Drug intolerance [Unknown]
  - Rib fracture [Unknown]
  - Osteopenia [Unknown]
  - Hysterectomy [Unknown]
  - Osteoarthritis [Unknown]
  - Arthritis [Unknown]
  - Tremor [Unknown]
  - Myalgia [Unknown]
  - Diarrhoea [Unknown]
